FAERS Safety Report 9733123 (Version 2)
Quarter: 2014Q1

REPORT INFORMATION
  Report Type: Spontaneous
  Country: IT (occurrence: IT)
  Receive Date: 20131205
  Receipt Date: 20140127
  Transmission Date: 20141002
  Serious: Yes (Hospitalization)
  Sender: FDA-Public Use
  Company Number: PHHY2013IT137386

PATIENT
  Age: 35 Year
  Sex: Male

DRUGS (9)
  1. CLARITHROMYCIN [Suspect]
     Indication: PHARYNGITIS
     Dosage: 1 DF, QD
     Route: 048
     Dates: start: 20131013, end: 20131018
  2. PROGRAF [Suspect]
     Indication: TRANSPLANT REJECTION
     Dosage: 6 MG, QD
     Route: 048
     Dates: start: 20070101, end: 20131018
  3. PROGRAF [Suspect]
     Dosage: 5 MG, UNK
     Route: 048
  4. MYFENAX//MYCOPHENOLATE MOFETIL [Concomitant]
     Indication: TRANSPLANT REJECTION
     Dosage: 2 DF, UNK
     Route: 048
     Dates: start: 20070101, end: 20131018
  5. CARDIOASPIRIN [Concomitant]
     Dosage: 100 MG, UNK
     Route: 048
     Dates: start: 20120101, end: 20131018
  6. LOBIVON [Concomitant]
     Dosage: 1 DF, UNK
     Route: 048
     Dates: start: 20120101, end: 20131018
  7. MAG 2 [Concomitant]
     Dosage: 1 DF, UNK
     Route: 048
     Dates: start: 20120101, end: 20131018
  8. DELTACORTENE [Concomitant]
     Dosage: 5 MG, UNK
     Route: 048
     Dates: start: 20120101, end: 20131018
  9. OMEPRAZOLE [Concomitant]
     Dosage: 5 MG, UNK
     Route: 048
     Dates: start: 20120101, end: 20131018

REACTIONS (1)
  - Renal failure acute [Recovering/Resolving]
